FAERS Safety Report 18561261 (Version 30)
Quarter: 2024Q3

REPORT INFORMATION
  Report Type: Report from Study
  Country: DE (occurrence: DE)
  Receive Date: 20201130
  Receipt Date: 20240903
  Transmission Date: 20241017
  Serious: Yes (Hospitalization, Other)
  Sender: TAKEDA
  Company Number: DE-SHIRE-DE202016021AA

PATIENT
  Age: 68 Year
  Sex: Female

DRUGS (37)
  1. VONICOG ALFA [Suspect]
     Active Substance: VONICOG ALFA
     Indication: Von Willebrand^s disease
     Dosage: 9100 INTERNATIONAL UNIT, 1/WEEK
     Route: 042
     Dates: start: 20200417
  2. VONICOG ALFA [Suspect]
     Active Substance: VONICOG ALFA
     Dosage: UNK UNK, 2/WEEK
     Route: 042
     Dates: start: 20200509
  3. VONICOG ALFA [Suspect]
     Active Substance: VONICOG ALFA
     Dosage: 5200 INTERNATIONAL UNIT, 1/WEEK
     Route: 042
     Dates: start: 20200518
  4. VONICOG ALFA [Suspect]
     Active Substance: VONICOG ALFA
     Dosage: UNK UNK, 2/WEEK
     Route: 042
     Dates: start: 20200724, end: 20200724
  5. VONICOG ALFA [Suspect]
     Active Substance: VONICOG ALFA
     Dosage: UNK UNK, 2/WEEK
     Route: 042
     Dates: start: 20200729, end: 20200729
  6. VONICOG ALFA [Suspect]
     Active Substance: VONICOG ALFA
     Dosage: UNK UNK, 1/WEEK
     Route: 042
     Dates: start: 20201106, end: 20201106
  7. VONICOG ALFA [Suspect]
     Active Substance: VONICOG ALFA
     Dosage: 1300 INTERNATIONAL UNIT
     Route: 042
  8. VONICOG ALFA [Suspect]
     Active Substance: VONICOG ALFA
     Dosage: 5200 INTERNATIONAL UNIT, 1/WEEK
     Route: 042
  9. VONICOG ALFA [Suspect]
     Active Substance: VONICOG ALFA
     Dosage: 3900 INTERNATIONAL UNIT, 1/WEEK
     Route: 042
  10. VONICOG ALFA [Suspect]
     Active Substance: VONICOG ALFA
     Dosage: 5200 INTERNATIONAL UNIT, 1/WEEK
     Route: 042
  11. VONICOG ALFA [Suspect]
     Active Substance: VONICOG ALFA
     Dosage: 3900 INTERNATIONAL UNIT, 1/WEEK
     Route: 042
  12. VONICOG ALFA [Suspect]
     Active Substance: VONICOG ALFA
     Dosage: 5200 INTERNATIONAL UNIT, 1/WEEK
     Route: 042
  13. VONICOG ALFA [Suspect]
     Active Substance: VONICOG ALFA
     Dosage: 5200 INTERNATIONAL UNIT, 1/WEEK
     Route: 042
  14. VONICOG ALFA [Suspect]
     Active Substance: VONICOG ALFA
     Dosage: 3900 INTERNATIONAL UNIT, 1/WEEK
     Route: 042
  15. VONICOG ALFA [Suspect]
     Active Substance: VONICOG ALFA
     Dosage: 5200 INTERNATIONAL UNIT, 1/WEEK
     Route: 042
  16. VONICOG ALFA [Suspect]
     Active Substance: VONICOG ALFA
     Dosage: 3900 INTERNATIONAL UNIT, 1/WEEK
     Route: 042
  17. VONICOG ALFA [Suspect]
     Active Substance: VONICOG ALFA
     Dosage: 3900 INTERNATIONAL UNIT, 1/WEEK
     Route: 042
  18. VONICOG ALFA [Suspect]
     Active Substance: VONICOG ALFA
     Dosage: 5200 INTERNATIONAL UNIT, 1/WEEK
     Route: 042
  19. VONICOG ALFA [Suspect]
     Active Substance: VONICOG ALFA
     Dosage: 3900 INTERNATIONAL UNIT, 1/WEEK
     Route: 042
  20. VONICOG ALFA [Suspect]
     Active Substance: VONICOG ALFA
     Dosage: 1300 INTERNATIONAL UNIT, QD
     Route: 065
  21. VONICOG ALFA [Suspect]
     Active Substance: VONICOG ALFA
     Dosage: 3900 INTERNATIONAL UNIT
     Route: 065
  22. VONICOG ALFA [Suspect]
     Active Substance: VONICOG ALFA
     Dosage: 2600 INTERNATIONAL UNIT, 3/WEEK
     Route: 065
  23. VONICOG ALFA [Suspect]
     Active Substance: VONICOG ALFA
     Dosage: 2600 INTERNATIONAL UNIT, 3/WEEK
     Route: 065
  24. METFORMIN [Concomitant]
     Active Substance: METFORMIN HYDROCHLORIDE
     Indication: Type 2 diabetes mellitus
     Dosage: UNK
     Route: 065
  25. DULAGLUTIDE [Concomitant]
     Active Substance: DULAGLUTIDE
     Indication: Diabetes mellitus
     Dosage: UNK
     Route: 065
  26. MAGNESIUM [Concomitant]
     Active Substance: MAGNESIUM
     Dosage: UNK
     Route: 065
  27. PANTOPRAZOLE [Concomitant]
     Active Substance: PANTOPRAZOLE
     Dosage: UNK
     Route: 065
  28. METFORMIN HYDROCHLORIDE [Concomitant]
     Active Substance: METFORMIN HYDROCHLORIDE
     Dosage: UNK
     Route: 065
  29. CHOLECALCIFEROL [Concomitant]
     Active Substance: CHOLECALCIFEROL
     Dosage: UNK
     Route: 065
  30. CYKLOKAPRON [Concomitant]
     Active Substance: TRANEXAMIC ACID
     Dosage: UNK
     Route: 065
  31. VERAPAMIL HYDROCHLORIDE [Concomitant]
     Active Substance: VERAPAMIL HYDROCHLORIDE
     Dosage: UNK
     Route: 065
  32. LOSARTAN [Concomitant]
     Active Substance: LOSARTAN\LOSARTAN POTASSIUM
     Dosage: UNK
     Route: 065
  33. TORSEMIDE [Concomitant]
     Active Substance: TORSEMIDE
     Dosage: UNK
     Route: 065
  34. HYGROTON [Concomitant]
     Active Substance: CHLORTHALIDONE
     Dosage: UNK
     Route: 065
  35. ATORVASTATIN [Concomitant]
     Active Substance: ATORVASTATIN
     Dosage: UNK
     Route: 065
  36. TRULICITY [Concomitant]
     Active Substance: DULAGLUTIDE
     Dosage: UNK
     Route: 065
  37. MOMETASONE FUROATE [Concomitant]
     Active Substance: MOMETASONE FUROATE
     Dosage: UNK
     Route: 065

REACTIONS (35)
  - Gastrointestinal haemorrhage [Unknown]
  - Hepatic cancer [Not Recovered/Not Resolved]
  - Hypercalcaemia [Recovered/Resolved]
  - Pulmonary oedema [Recovered/Resolved]
  - Gait disturbance [Not Recovered/Not Resolved]
  - Pulmonary congestion [Recovered/Resolved]
  - Weight decreased [Not Recovered/Not Resolved]
  - Fluid retention [Not Recovered/Not Resolved]
  - Haemoglobin decreased [Not Recovered/Not Resolved]
  - Cough [Recovering/Resolving]
  - Cardiac disorder [Recovered/Resolved]
  - Asthenia [Not Recovered/Not Resolved]
  - Oedema peripheral [Recovering/Resolving]
  - Localised oedema [Not Recovered/Not Resolved]
  - Inflammation [Not Recovered/Not Resolved]
  - Pneumonia [Recovered/Resolved]
  - Myocardial infarction [Recovered/Resolved]
  - Atrial fibrillation [Recovered/Resolved]
  - Melaena [Not Recovered/Not Resolved]
  - Coronary artery disease [Recovered/Resolved with Sequelae]
  - General physical health deterioration [Recovered/Resolved]
  - Dyspnoea [Recovered/Resolved]
  - Eye haemorrhage [Recovering/Resolving]
  - Haemarthrosis [Recovered/Resolved]
  - Chest wall haematoma [Recovered/Resolved]
  - Femoral neck fracture [Unknown]
  - Blood pressure increased [Recovering/Resolving]
  - Overdose [Recovered/Resolved]
  - Incorrect dose administered [Unknown]
  - Product prescribing error [Unknown]
  - Ocular hyperaemia [Recovered/Resolved]
  - Lacrimation increased [Recovered/Resolved]
  - COVID-19 [Recovered/Resolved]
  - Fall [Not Recovered/Not Resolved]
  - Treatment noncompliance [Recovered/Resolved]

NARRATIVE: CASE EVENT DATE: 20200510
